FAERS Safety Report 4554725-8 (Version None)
Quarter: 2005Q1

REPORT INFORMATION
  Report Type: 
  Country: None (occurrence: None)
  Receive Date: 20041228
  Receipt Date: 20040426
  Transmission Date: 20050727
  Serious: Yes (Hospitalization)
  Sender: FDA-Public Use
  Company Number: ALMO2004013

PATIENT
  Age: 64 Year
  Sex: Female

DRUGS (6)
  1. ALMOGRAN [Suspect]
     Indication: HEADACHE
     Dosage: 12.5 MG DAILY PO
     Route: 048
     Dates: start: 20040318, end: 20040318
  2. CORDARONE [Concomitant]
  3. KARDEGIC [Concomitant]
  4. TAHOR [Concomitant]
  5. LEVOTHYROXINE SODIUM [Concomitant]
  6. EUSCLIM [Concomitant]

REACTIONS (1)
  - COLITIS [None]
